FAERS Safety Report 5186721-4 (Version None)
Quarter: 2006Q4

REPORT INFORMATION
  Report Type: 
  Country: None (occurrence: None)
  Receive Date: 20061213
  Receipt Date: 20061204
  Transmission Date: 20070319
  Serious: Yes (Life-Threatening, Hospitalization)
  Sender: FDA-Public Use
  Company Number: 231633K06USA

PATIENT
  Age: 58 Year
  Sex: Male

DRUGS (7)
  1. REBIF [Suspect]
     Indication: MULTIPLE SCLEROSIS
     Dosage: 44 MCG, 3 IN 1 WEEKS, SUBCUTANEOUS
     Route: 058
     Dates: start: 20051229, end: 20060301
  2. DOXEPIN (DOXEPIN /001138001/) [Suspect]
     Dosage: 2 DOSAGE FORMS, ONCE, NOT REPORTED
     Dates: start: 20060303, end: 20060303
  3. LEXAPRO [Suspect]
     Dosage: 10 MG, 1 IN 1 DAYS, ORAL
     Route: 048
     Dates: start: 20040101
  4. AMBIEN [Concomitant]
  5. DILANTIN [Concomitant]
  6. DEPAKOTE [Concomitant]
  7. DALMANE [Concomitant]

REACTIONS (8)
  - COMPLEX PARTIAL SEIZURES [None]
  - CONDITION AGGRAVATED [None]
  - DEPRESSION [None]
  - GRAND MAL CONVULSION [None]
  - INCORRECT DOSE ADMINISTERED [None]
  - INSOMNIA [None]
  - MEMORY IMPAIRMENT [None]
  - VIRAL INFECTION [None]
